FAERS Safety Report 8397933-0 (Version None)
Quarter: 2012Q2

REPORT INFORMATION
  Report Type: 
  Country: None (occurrence: None)
  Receive Date: 20120531
  Receipt Date: 20120525
  Transmission Date: 20120825
  Serious: Yes (Other)
  Sender: FDA-Public Use
  Company Number: PHHY2012VE046060

PATIENT
  Sex: Female

DRUGS (2)
  1. COZAAR [Concomitant]
     Dosage: 50 MG, QD
  2. ZOLEDRONOC ACID [Suspect]
     Indication: OSTEOPOROSIS
     Dosage: UNK UKN, UNK
     Route: 042

REACTIONS (6)
  - FALL [None]
  - DIABETES MELLITUS [None]
  - HYPERTENSION [None]
  - HYPOTENSION [None]
  - FATIGUE [None]
  - SYNCOPE [None]
